FAERS Safety Report 6689752-8 (Version None)
Quarter: 2010Q2

REPORT INFORMATION
  Report Type: 
  Country: None (occurrence: None)
  Receive Date: 20100421
  Receipt Date: 20100412
  Transmission Date: 20101027
  Serious: Yes (Other)
  Sender: FDA-Public Use
  Company Number: US-JNJFOC-20091106842

PATIENT
  Sex: Female
  Weight: 80.74 kg

DRUGS (7)
  1. DURAGESIC-100 [Suspect]
     Indication: PAIN IN EXTREMITY
  2. DURAGESIC-100 [Suspect]
     Route: 062
  3. TOPROL-XL [Concomitant]
     Indication: CARDIAC DISORDER
     Route: 048
  4. TYLENOL W/ CODEINE NO. 3 [Concomitant]
     Indication: PAIN
     Route: 048
  5. PLAVIX [Concomitant]
     Indication: CARDIAC DISORDER
     Route: 048
  6. LASIX [Concomitant]
     Indication: DRUG USE FOR UNKNOWN INDICATION
     Route: 065
  7. PROTONIX [Concomitant]
     Indication: DRUG USE FOR UNKNOWN INDICATION
     Route: 065

REACTIONS (6)
  - ABNORMAL LOSS OF WEIGHT [None]
  - CONTUSION [None]
  - DRUG ADMINISTERED AT INAPPROPRIATE SITE [None]
  - FALL [None]
  - NAUSEA [None]
  - OSTEOARTHRITIS [None]
